FAERS Safety Report 25924316 (Version 1)
Quarter: 2025Q4

REPORT INFORMATION
  Report Type: Spontaneous
  Country: AU (occurrence: AU)
  Receive Date: 20251015
  Receipt Date: 20251015
  Transmission Date: 20260117
  Serious: Yes (Death, Other)
  Sender: BOEHRINGER INGELHEIM
  Company Number: AU-BoehringerIngelheim-2025-BI-101137

PATIENT
  Age: 61 Year
  Sex: Male

DRUGS (1)
  1. GLYXAMBI [Suspect]
     Active Substance: EMPAGLIFLOZIN\LINAGLIPTIN
     Indication: Type 2 diabetes mellitus

REACTIONS (5)
  - Euglycaemic diabetic ketoacidosis [Fatal]
  - Staphylococcal bacteraemia [Fatal]
  - Back pain [Fatal]
  - Pyrexia [Fatal]
  - Vomiting [Fatal]
